FAERS Safety Report 8950632 (Version 1)
Quarter: 2012Q4

REPORT INFORMATION
  Report Type: Spontaneous
  Country: GB (occurrence: None)
  Receive Date: 20121128
  Receipt Date: 20121128
  Transmission Date: 20130627
  Serious: Yes (Other)
  Sender: FDA-Public Use
  Company Number: AUR-APL-2012-04924

PATIENT
  Age: 63 Year
  Sex: Male
  Weight: 73 kg

DRUGS (6)
  1. SIMVASTATIN (SIMVASTATIN) [Suspect]
     Indication: DRUG USE FOR UNKNOWN INDICATION
     Dates: start: 20120618, end: 20121023
  2. ASPIRIN (ACEYTLSALICYLIC ACID) [Concomitant]
  3. BECONASE (BECLOMETASONE DIPROPIONATE) [Concomitant]
  4. DOUBLEBASE (HYDROMOL /00906601/) [Concomitant]
  5. WARFARIN SODIUM (WARFARIN SODIUM) [Concomitant]
  6. ZAPAIN (GALENIC /PARACETAMOL/CODEINE/) [Concomitant]

REACTIONS (1)
  - Ejaculation disorder [None]
